FAERS Safety Report 23465039 (Version 2)
Quarter: 2024Q2

REPORT INFORMATION
  Report Type: Report from Study
  Country: US (occurrence: US)
  Receive Date: 20240201
  Receipt Date: 20240401
  Transmission Date: 20240715
  Serious: No
  Sender: FDA-Public Use
  Company Number: US-BRISTOL-MYERS SQUIBB COMPANY-2024-016561

PATIENT
  Age: 67 Year
  Sex: Female
  Weight: 77.11 kg

DRUGS (1)
  1. REVLIMID [Suspect]
     Active Substance: LENALIDOMIDE
     Indication: Plasma cell myeloma
     Route: 048
     Dates: start: 202311

REACTIONS (7)
  - Fatigue [Unknown]
  - Tooth abscess [Unknown]
  - Gastrointestinal bacterial overgrowth [Unknown]
  - Peripheral swelling [Unknown]
  - Sinus disorder [Unknown]
  - Glossodynia [Not Recovered/Not Resolved]
  - Ear disorder [Unknown]
